FAERS Safety Report 4773197-1 (Version None)
Quarter: 2005Q3

REPORT INFORMATION
  Report Type: 
  Country: None (occurrence: None)
  Receive Date: 20050919
  Receipt Date: 20050609
  Transmission Date: 20060218
  Serious: Yes (Hospitalization, Disabling)
  Sender: FDA-Public Use
  Company Number: US-MERCK-0506USA01836

PATIENT
  Age: 72 Year
  Sex: Female
  Weight: 77 kg

DRUGS (6)
  1. VIOXX [Suspect]
     Indication: ARTHRITIS
     Route: 048
     Dates: start: 20010910, end: 20021230
  2. PROZAC [Concomitant]
     Indication: EMOTIONAL DISORDER
     Route: 065
     Dates: start: 19920101
  3. PROZAC [Concomitant]
     Route: 065
  4. LOTENSIN [Concomitant]
     Route: 065
     Dates: start: 19910101
  5. LOPRESSOR [Concomitant]
     Indication: HYPERTENSION
     Route: 065
     Dates: start: 19890101
  6. LORTAB [Concomitant]
     Indication: BACK PAIN
     Route: 065
     Dates: start: 19980101

REACTIONS (34)
  - ABSCESS LIMB [None]
  - BACK PAIN [None]
  - BLOOD PRESSURE INADEQUATELY CONTROLLED [None]
  - CARDIAC FAILURE CONGESTIVE [None]
  - CARDIAC FLUTTER [None]
  - CELLULITIS [None]
  - CLOSED HEAD INJURY [None]
  - CONTUSION [None]
  - COORDINATION ABNORMAL [None]
  - CORONARY ARTERY DISEASE [None]
  - DEAFNESS UNILATERAL [None]
  - DIASTOLIC DYSFUNCTION [None]
  - DIZZINESS [None]
  - DYSLIPIDAEMIA [None]
  - DYSPNOEA [None]
  - FALL [None]
  - HAEMATOMA [None]
  - HYPERCHOLESTEROLAEMIA [None]
  - HYPERTENSION [None]
  - INTERVERTEBRAL DISC DISORDER [None]
  - LOSS OF CONSCIOUSNESS [None]
  - NECK INJURY [None]
  - PAIN [None]
  - PALPITATIONS [None]
  - ROAD TRAFFIC ACCIDENT [None]
  - SINUSITIS [None]
  - SPINAL COLUMN STENOSIS [None]
  - SUBDURAL HAEMATOMA [None]
  - SUDDEN HEARING LOSS [None]
  - TREATMENT NONCOMPLIANCE [None]
  - URINARY TRACT INFECTION [None]
  - VENTRICULAR DYSFUNCTION [None]
  - VERTIGO [None]
  - VESTIBULAR NEURONITIS [None]
